FAERS Safety Report 4875240-8 (Version None)
Quarter: 2006Q1

REPORT INFORMATION
  Report Type: 
  Country: None (occurrence: None)
  Receive Date: 20060109
  Receipt Date: 20050915
  Transmission Date: 20060701
  Serious: Yes (Hospitalization)
  Sender: FDA-Public Use
  Company Number: US-MERCK-0509USA02472

PATIENT
  Age: 54 Year
  Sex: Female

DRUGS (8)
  1. VIOXX [Suspect]
     Route: 048
     Dates: start: 19990824, end: 20040901
  2. VIOXX [Suspect]
     Route: 048
  3. ZOLOFT [Concomitant]
     Route: 048
  4. AVAPRO [Concomitant]
     Route: 065
  5. MAXZIDE [Concomitant]
     Route: 065
  6. EFFEXOR [Concomitant]
     Route: 048
  7. BENTYL [Concomitant]
     Route: 048
  8. VALIUM [Concomitant]
     Route: 065

REACTIONS (24)
  - ACTINIC KERATOSIS [None]
  - ANGINA UNSTABLE [None]
  - CARDIAC FAILURE CONGESTIVE [None]
  - CARDIOMEGALY [None]
  - CHEST PAIN [None]
  - CHRONIC OBSTRUCTIVE PULMONARY DISEASE [None]
  - CORONARY ARTERY DISEASE [None]
  - CORONARY ARTERY OCCLUSION [None]
  - COUGH [None]
  - DIARRHOEA [None]
  - DYSPNOEA [None]
  - HYPERLIPIDAEMIA [None]
  - HYPOTENSION [None]
  - IRON DEFICIENCY ANAEMIA [None]
  - IRRITABLE BOWEL SYNDROME [None]
  - ISCHAEMIC CARDIOMYOPATHY [None]
  - MITRAL VALVE INCOMPETENCE [None]
  - MYOCARDIAL INFARCTION [None]
  - PULMONARY HYPERTENSION [None]
  - PYREXIA [None]
  - RENAL FAILURE CHRONIC [None]
  - SINUS TACHYCARDIA [None]
  - TRICUSPID VALVE INCOMPETENCE [None]
  - VENTRICULAR DYSFUNCTION [None]
